FAERS Safety Report 8268813-6 (Version None)
Quarter: 2012Q2

REPORT INFORMATION
  Report Type: 
  Country: None (occurrence: None)
  Receive Date: 20120409
  Receipt Date: 20120409
  Transmission Date: 20120825
  Serious: Yes (Other)
  Sender: FDA-Public Use
  Company Number: None

PATIENT
  Age: 19 Year
  Sex: Male
  Weight: 97.522 kg

DRUGS (3)
  1. TEMAZEPAM [Suspect]
     Indication: SLEEP DISORDER
     Dosage: 1 CAP
     Route: 048
     Dates: start: 20090318, end: 20090723
  2. TOPIRAMATE [Concomitant]
     Indication: HEADACHE
     Dosage: 1 TAB
     Route: 048
     Dates: start: 20090318, end: 20090723
  3. TOPIRAMATE [Concomitant]
     Indication: AFFECTIVE DISORDER
     Dosage: 1 TAB
     Route: 048
     Dates: start: 20090318, end: 20090723

REACTIONS (12)
  - MENTAL DISORDER [None]
  - FEELING OF DESPAIR [None]
  - EMOTIONAL DISORDER [None]
  - DEPRESSED MOOD [None]
  - INSOMNIA [None]
  - PARANOIA [None]
  - ANGER [None]
  - COMPLETED SUICIDE [None]
  - ANXIETY [None]
  - DISSOCIATION [None]
  - TREATMENT NONCOMPLIANCE [None]
  - SUICIDAL IDEATION [None]
